FAERS Safety Report 8509618-8 (Version None)
Quarter: 2012Q3

REPORT INFORMATION
  Report Type: 
  Country: None (occurrence: None)
  Receive Date: 20120713
  Receipt Date: 20120710
  Transmission Date: 20120928
  Serious: Yes (Hospitalization)
  Sender: FDA-Public Use
  Company Number: BE-JNJFOC-20120507712

PATIENT
  Sex: Female
  Weight: 103 kg

DRUGS (11)
  1. AZATHIOPRINE [Concomitant]
  2. SUPRADYNE [Concomitant]
     Indication: VITAMIN SUPPLEMENTATION
  3. FRAXIPARINE [Concomitant]
  4. HUMIRA [Concomitant]
     Dates: start: 20110223
  5. MESALAMINE [Concomitant]
     Route: 054
  6. MINOCYCLINE HCL [Concomitant]
  7. CIMZIA [Concomitant]
  8. MESALAMINE [Concomitant]
     Route: 048
  9. PREDNISONE [Concomitant]
  10. PANTOPRAZOLE [Concomitant]
  11. REMICADE [Suspect]
     Indication: CROHN'S DISEASE
     Route: 042
     Dates: start: 20031222, end: 20110204

REACTIONS (1)
  - HERPES ZOSTER [None]
